FAERS Safety Report 21799506 (Version 1)
Quarter: 2022Q4

REPORT INFORMATION
  Report Type: Spontaneous
  Country: CA (occurrence: CA)
  Receive Date: 20221230
  Receipt Date: 20221230
  Transmission Date: 20230113
  Serious: Yes (Other)
  Sender: FDA-Public Use
  Company Number: CA-MACLEODS PHARMACEUTICALS US LTD-MAC2022039007

PATIENT

DRUGS (5)
  1. VENLAFAXINE [Suspect]
     Active Substance: VENLAFAXINE HYDROCHLORIDE
     Indication: Major depression
     Dosage: 262.5 MILLIGRAM, QD (IN THE MORNING)
     Route: 065
  2. VENLAFAXINE [Suspect]
     Active Substance: VENLAFAXINE HYDROCHLORIDE
     Indication: Generalised anxiety disorder
  3. VENLAFAXINE [Suspect]
     Active Substance: VENLAFAXINE HYDROCHLORIDE
     Indication: Social anxiety disorder
  4. LORAZEPAM [Concomitant]
     Active Substance: LORAZEPAM
     Indication: Anxiety
     Dosage: 1 MILLIGRAM, PRN (1 MG TWICE DAILY AS NEEDED FOR ANXIETY (SHE USED 4 DOSES PER WEEK))
     Route: 065
  5. ALESSE 28 [Concomitant]
     Active Substance: ETHINYL ESTRADIOL\LEVONORGESTREL
     Indication: Product used for unknown indication
     Dosage: 84 DOSAGE FORM (ONCE DAILY ON A CYCLE OF DAILY FOR 12 WEEKS, FOLLOWED BY A 1 WEEK BREAK AND THEN REP
     Route: 065

REACTIONS (10)
  - Electrocardiogram QT prolonged [Unknown]
  - Intentional self-injury [Unknown]
  - Incorrect dose administered [Unknown]
  - Hyperhidrosis [Unknown]
  - Blood pressure systolic increased [Unknown]
  - Tachycardia [Unknown]
  - Myalgia [Recovered/Resolved]
  - Antidepressant discontinuation syndrome [Recovered/Resolved]
  - Product dose omission issue [Recovered/Resolved]
  - Sensory disturbance [Recovered/Resolved]
